FAERS Safety Report 7228196-7 (Version None)
Quarter: 2011Q1

REPORT INFORMATION
  Report Type: 
  Country: None (occurrence: None)
  Receive Date: 20110114
  Receipt Date: 20110105
  Transmission Date: 20110831
  Serious: Yes (Hospitalization)
  Sender: FDA-Public Use
  Company Number: FR-JNJFOC-20110101597

PATIENT
  Age: 61 Year
  Sex: Male
  Weight: 67 kg

DRUGS (6)
  1. STELARA [Suspect]
     Indication: PSORIASIS
     Route: 058
  2. STELARA [Suspect]
     Route: 058
  3. GLUCOPHAGE [Concomitant]
     Indication: TYPE 2 DIABETES MELLITUS
  4. GLYBURIDE [Concomitant]
     Indication: TYPE 2 DIABETES MELLITUS
  5. RIVOTRIL [Concomitant]
     Indication: PRODUCT USED FOR UNKNOWN INDICATION
  6. LEVEMIR [Concomitant]
     Indication: TYPE 2 DIABETES MELLITUS
     Route: 058
     Dates: start: 20080101, end: 20101210

REACTIONS (2)
  - DIABETES MELLITUS [None]
  - HYPOGLYCAEMIA [None]
